FAERS Safety Report 7057984-5 (Version None)
Quarter: 2010Q4

REPORT INFORMATION
  Report Type: 
  Country: None (occurrence: None)
  Receive Date: 20101022
  Receipt Date: 20101006
  Transmission Date: 20110411
  Serious: Yes (Other)
  Sender: FDA-Public Use
  Company Number: PHHY2010RU66235

PATIENT
  Sex: Female

DRUGS (5)
  1. EXFORGE [Suspect]
     Indication: HYPERTENSION
     Dosage: 80/5 MG DAILY
     Dates: end: 20101005
  2. PHYSIOTENS [Concomitant]
     Indication: HYPERTENSION
     Dosage: 0.4 MG DAILY
  3. CONCOR [Concomitant]
     Indication: HYPERTENSION
     Dosage: 5 MG DAILY
  4. IONIK RETARD [Concomitant]
     Indication: HYPERTENSION
     Dosage: 1.5 MG DAILY
  5. ASPIRIN [Concomitant]
     Dosage: 50 MG, UNK

REACTIONS (8)
  - ASTHENIA [None]
  - EYELID OEDEMA [None]
  - GENERAL PHYSICAL HEALTH DETERIORATION [None]
  - HEADACHE [None]
  - HYPERSENSITIVITY [None]
  - OEDEMA PERIPHERAL [None]
  - SENSATION OF HEAVINESS [None]
  - VISION BLURRED [None]
